FAERS Safety Report 13523554 (Version 3)
Quarter: 2018Q2

REPORT INFORMATION
  Report Type: Spontaneous
  Country: US (occurrence: US)
  Receive Date: 20170508
  Receipt Date: 20180615
  Transmission Date: 20180711
  Serious: No
  Sender: FDA-Public Use
  Company Number: US-VIFOR (INTERNATIONAL) INC.-VIT-2017-01836

PATIENT
  Age: 72 Year
  Sex: Female

DRUGS (15)
  1. ATORVASTATIN [Concomitant]
     Active Substance: ATORVASTATIN
  2. LISINOPRIL. [Concomitant]
     Active Substance: LISINOPRIL
  3. VELTASSA [Suspect]
     Active Substance: PATIROMER
  4. CHLORTALIDONE [Concomitant]
     Active Substance: CHLORTHALIDONE
  5. FOLIC ACID. [Concomitant]
     Active Substance: FOLIC ACID
  6. COLECALCIFEROL [Concomitant]
     Active Substance: CHOLECALCIFEROL
  7. VELTASSA [Suspect]
     Active Substance: PATIROMER
     Indication: HYPERKALAEMIA
     Route: 048
     Dates: start: 20161011
  8. CENTRAL-VITE [Concomitant]
  9. ERGOCALCIFEROL. [Concomitant]
     Active Substance: ERGOCALCIFEROL
  10. VELTASSA [Suspect]
     Active Substance: PATIROMER
  11. ACETYLSALICYLIC ACID [Concomitant]
     Active Substance: ASPIRIN
  12. AMLODIPINE [Concomitant]
     Active Substance: AMLODIPINE BESYLATE
  13. OMEPRAZOLE. [Concomitant]
     Active Substance: OMEPRAZOLE
  14. TUMS EX [Concomitant]
     Active Substance: CALCIUM CARBONATE
  15. ASCORBIC ACID~~TOCOPHERYL ACETATE~~ZINC OXIDE~~CUPRIC OXIDE~~BETACAROTENE [Concomitant]

REACTIONS (4)
  - Abdominal distension [Unknown]
  - Feeling abnormal [Unknown]
  - Constipation [Not Recovered/Not Resolved]
  - Drug dose omission [Unknown]

NARRATIVE: CASE EVENT DATE: 201611
